FAERS Safety Report 11874466 (Version 1)
Quarter: 2015Q4

REPORT INFORMATION
  Report Type: Spontaneous
  Country: US (occurrence: None)
  Receive Date: 20151228
  Receipt Date: 20151228
  Transmission Date: 20160305
  Serious: Yes (Death, Life-Threatening, Hospitalization, Other)
  Sender: FDA-Public Use
  Company Number: None

PATIENT
  Age: 82 Year
  Sex: Male
  Weight: 102.06 kg

DRUGS (13)
  1. METFORMIN [Concomitant]
     Active Substance: METFORMIN HYDROCHLORIDE
  2. VITAMIN D [Concomitant]
     Active Substance: CHOLECALCIFEROL
  3. GLIMEPRIDE [Concomitant]
     Active Substance: GLIMEPIRIDE
  4. WELLBUTRIN [Concomitant]
     Active Substance: BUPROPION HYDROCHLORIDE
  5. METROPRODOL [Concomitant]
  6. ASPIRIN. [Concomitant]
     Active Substance: ASPIRIN
  7. ZITIA [Concomitant]
  8. VITAMIN C [Concomitant]
     Active Substance: ASCORBIC ACID
  9. RISPERDAL [Suspect]
     Active Substance: RISPERIDONE
     Indication: SEDATION
     Dates: start: 20151214, end: 20151214
  10. NAMENDO [Concomitant]
  11. LISINOPRIL. [Concomitant]
     Active Substance: LISINOPRIL
  12. SEROQUEL [Suspect]
     Active Substance: QUETIAPINE FUMARATE
  13. JANUVIA [Concomitant]
     Active Substance: SITAGLIPTIN PHOSPHATE

REACTIONS (5)
  - Drug prescribing error [None]
  - Unresponsive to stimuli [None]
  - Dehydration [None]
  - Oxygen saturation decreased [None]
  - Anxiety [None]

NARRATIVE: CASE EVENT DATE: 20151214
